FAERS Safety Report 4847278-8 (Version None)
Quarter: 2005Q4

REPORT INFORMATION
  Report Type: 
  Country: None (occurrence: None)
  Receive Date: 20051205
  Receipt Date: 20051205
  Transmission Date: 20060501
  Serious: Yes (Hospitalization)
  Sender: FDA-Public Use
  Company Number: None

PATIENT
  Age: 74 Year
  Sex: Female
  Weight: 83.0083 kg

DRUGS (1)
  1. AMIODARONE    200 MG [Suspect]
     Indication: ATRIAL FIBRILLATION
     Dosage: VARIABLE    DAILY   PO
     Route: 048

REACTIONS (3)
  - HYPERTHYROIDISM [None]
  - MUSCULAR WEAKNESS [None]
  - SUDDEN DEATH [None]
